FAERS Safety Report 7129416-X (Version None)
Quarter: 2010Q4

REPORT INFORMATION
  Report Type: 
  Country: None (occurrence: None)
  Receive Date: 20101130
  Receipt Date: 20101119
  Transmission Date: 20110411
  Serious: Yes (Death, Hospitalization)
  Sender: FDA-Public Use
  Company Number: FR-CELGENEUS-056-21880-10090871

PATIENT
  Sex: Male

DRUGS (3)
  1. REVLIMID [Suspect]
     Indication: MULTIPLE MYELOMA
     Route: 048
     Dates: start: 20071215, end: 20100908
  2. DEXAMETHASONE [Concomitant]
     Indication: MULTIPLE MYELOMA
     Route: 065
     Dates: start: 20071212
  3. NOXAFIL [Concomitant]
     Indication: PROPHYLAXIS
     Route: 065
     Dates: start: 20100901, end: 20100924

REACTIONS (3)
  - ACUTE LYMPHOCYTIC LEUKAEMIA [None]
  - HYPERTHERMIA [None]
  - PSEUDOMONAL SEPSIS [None]
